FAERS Safety Report 20060479 (Version 5)
Quarter: 2022Q3

REPORT INFORMATION
  Report Type: Report from Study
  Country: ZM (occurrence: ZM)
  Receive Date: 20211112
  Receipt Date: 20220914
  Transmission Date: 20221027
  Serious: Yes (Hospitalization, Other)
  Sender: FDA-Public Use
  Company Number: ZM-CIPLA LTD.-2021ZM07401

PATIENT
  Sex: Female

DRUGS (4)
  1. DOLUTEGRAVIR [Suspect]
     Active Substance: DOLUTEGRAVIR
     Indication: Retroviral infection
     Dosage: UNK (PEDIATRIC DOSE)
     Route: 065
     Dates: start: 20210125, end: 20211005
  2. DOLUTEGRAVIR [Suspect]
     Active Substance: DOLUTEGRAVIR
     Dosage: 5 MILLIGRAM, UNK
     Route: 065
     Dates: start: 20211005, end: 20211101
  3. DOLUTEGRAVIR [Suspect]
     Active Substance: DOLUTEGRAVIR
     Dosage: 50 MILLIGRAM, UNK
     Route: 065
     Dates: start: 20211101
  4. EMTRICITABINE\TENOFOVIR [Suspect]
     Active Substance: EMTRICITABINE\TENOFOVIR
     Indication: Retroviral infection
     Dosage: 120/15 MG, UNK
     Route: 065
     Dates: start: 20210125

REACTIONS (2)
  - Plasmodium falciparum infection [Recovered/Resolved]
  - Thrombocytopenia [Recovered/Resolved]

NARRATIVE: CASE EVENT DATE: 20211101
